FAERS Safety Report 14973754 (Version 1)
Quarter: 2018Q2

REPORT INFORMATION
  Report Type: Spontaneous
  Country: JP (occurrence: JP)
  Receive Date: 20180605
  Receipt Date: 20180605
  Transmission Date: 20180711
  Serious: Yes (Other)
  Sender: FDA-Public Use
  Company Number: JP-SA-2018SA142664

PATIENT
  Age: 8 Year
  Sex: Female

DRUGS (3)
  1. MELPHALAN. [Concomitant]
     Active Substance: MELPHALAN
     Indication: BONE MARROW CONDITIONING REGIMEN
     Dosage: 140 MG/M2
     Route: 065
  2. FLUDARA [Suspect]
     Active Substance: FLUDARABINE PHOSPHATE
     Indication: BONE MARROW CONDITIONING REGIMEN
     Dosage: 125 MG/M2
     Route: 065
  3. THYMOGLOBULINE [Suspect]
     Active Substance: LAPINE T-LYMPHOCYTE IMMUNE GLOBULIN
     Indication: BONE MARROW CONDITIONING REGIMEN
     Dosage: 5 MG/KG
     Route: 065

REACTIONS (14)
  - Pericardial effusion [Unknown]
  - Plasma cell disorder [Unknown]
  - Blood pressure increased [Unknown]
  - Haematuria [Unknown]
  - Blood lactate dehydrogenase increased [Unknown]
  - Seizure [Unknown]
  - Red cell fragmentation syndrome [Unknown]
  - Renal disorder [Unknown]
  - Thrombotic microangiopathy [Unknown]
  - Posterior reversible encephalopathy syndrome [Unknown]
  - Haptoglobin decreased [Unknown]
  - Proteinuria [Unknown]
  - Hypertension [Unknown]
  - Glomerulosclerosis [Unknown]
